FAERS Safety Report 16810566 (Version 1)
Quarter: 2019Q3

REPORT INFORMATION
  Report Type: Spontaneous
  Country: FR (occurrence: FR)
  Receive Date: 20190916
  Receipt Date: 20190916
  Transmission Date: 20191005
  Serious: Yes (Hospitalization)
  Sender: FDA-Public Use
  Company Number: FR-MYLANLABS-2019M1085562

PATIENT
  Age: 63 Year
  Sex: Female
  Weight: 86 kg

DRUGS (2)
  1. CARBOPLATIN. [Suspect]
     Active Substance: CARBOPLATIN
     Indication: NEUROENDOCRINE CARCINOMA METASTATIC
     Dosage: 1 CURE TOUTES LES 3 SEMAINES
     Route: 042
     Dates: start: 20181120
  2. ETOPOSIDE. [Suspect]
     Active Substance: ETOPOSIDE
     Indication: NEUROENDOCRINE CARCINOMA METASTATIC
     Dosage: 1 INJECTION TOUTES LES 3 SEMAINES
     Route: 042
     Dates: start: 20181120

REACTIONS (1)
  - Rash maculo-papular [Not Recovered/Not Resolved]

NARRATIVE: CASE EVENT DATE: 20181120
